FAERS Safety Report 4339877-7 (Version None)
Quarter: 2004Q2

REPORT INFORMATION
  Report Type: 
  Country: None (occurrence: None)
  Receive Date: 20040416
  Receipt Date: 20040315
  Transmission Date: 20050107
  Serious: Yes (Other)
  Sender: FDA-Public Use
  Company Number: 200414146GDDC

PATIENT
  Age: 61 Year
  Sex: Female

DRUGS (2)
  1. METRONIDAZOLE [Suspect]
     Route: 048
  2. THYROXINE [Concomitant]
     Route: 048
     Dates: start: 20001001

REACTIONS (1)
  - ARTHRALGIA [None]
